FAERS Safety Report 13364074 (Version 5)
Quarter: 2019Q2

REPORT INFORMATION
  Report Type: Report from Study
  Country: CZ (occurrence: CZ)
  Receive Date: 20170323
  Receipt Date: 20190603
  Transmission Date: 20190711
  Serious: Yes (Hospitalization, Other)
  Sender: FDA-Public Use
  Company Number: CZ-UCBSA-2017011037

PATIENT
  Age: 45 Year
  Sex: Male
  Weight: 76 kg

DRUGS (5)
  1. GENTAMICIN SULFATE. [Concomitant]
     Active Substance: GENTAMICIN SULFATE
     Indication: FOLLICULITIS
     Dosage: 1 MG, 2X/DAY (BID); 1MG/1 G CREAM
     Route: 061
     Dates: start: 20170201
  2. CERTOLIZUMAB PEGOL VS PLACEBO [Suspect]
     Active Substance: CERTOLIZUMAB PEGOL
     Indication: AXIAL SPONDYLOARTHRITIS
     Dosage: 200 MILLIGRAM, EV 2 WEEKS(QOW)
     Route: 058
     Dates: start: 20161123, end: 20161221
  3. CERTOLIZUMAB PEGOL VS PLACEBO [Suspect]
     Active Substance: CERTOLIZUMAB PEGOL
     Dosage: 200 MG, EV 2 WEEKS(QOW)
     Route: 058
     Dates: start: 20170118, end: 20170215
  4. ACECLOFENAC [Concomitant]
     Active Substance: ACECLOFENAC
     Indication: AXIAL SPONDYLOARTHRITIS
     Dosage: 100 MG, ONCE DAILY (QD); 0-0-1
     Route: 048
     Dates: start: 201606
  5. BETAMETHASONE. [Concomitant]
     Active Substance: BETAMETHASONE
     Indication: FOLLICULITIS
     Dosage: 0.5 MG, 2X/DAY (BID); 0.5 MG/1 G CREAM
     Route: 061
     Dates: start: 20170201

REACTIONS (1)
  - Palmoplantar pustulosis [Recovering/Resolving]

NARRATIVE: CASE EVENT DATE: 20170314
